FAERS Safety Report 23676017 (Version 1)
Quarter: 2024Q1

REPORT INFORMATION
  Report Type: Report from Study
  Country: GB (occurrence: GB)
  Receive Date: 20240327
  Receipt Date: 20240327
  Transmission Date: 20240410
  Serious: Yes (Hospitalization)
  Sender: FDA-Public Use
  Company Number: GB-SERVIER-S24003266

PATIENT

DRUGS (1)
  1. LONSURF [Suspect]
     Active Substance: TIPIRACIL HYDROCHLORIDE\TRIFLURIDINE
     Indication: Gastric cancer
     Dosage: UNK
     Route: 048

REACTIONS (4)
  - Toxicity to various agents [Unknown]
  - Pyrexia [Unknown]
  - Constipation [Unknown]
  - Neutropenia [Unknown]
